FAERS Safety Report 7414232-1 (Version None)
Quarter: 2011Q2

REPORT INFORMATION
  Report Type: 
  Country: None (occurrence: None)
  Receive Date: 20110414
  Receipt Date: 20110404
  Transmission Date: 20111010
  Serious: No
  Sender: FDA-Public Use
  Company Number: BR-ELI_LILLY_AND_COMPANY-BR201103003287

PATIENT
  Sex: Male

DRUGS (4)
  1. ORAL ANTIDIABETICS [Concomitant]
     Indication: DIABETES MELLITUS
     Dosage: UNK, UNKNOWN
     Route: 065
  2. SILDENAFIL CITRATE [Concomitant]
     Dosage: 50 MG, UNKNOWN
     Route: 065
  3. VIAGRA [Concomitant]
     Dosage: 50 MG, UNKNOWN
     Route: 065
     Dates: start: 20040101
  4. INSULIN HUMAN [Suspect]
     Indication: DIABETES MELLITUS
     Dosage: 30 IU, 2/D
     Route: 065
     Dates: start: 20080101

REACTIONS (1)
  - NO ADVERSE EVENT [None]
